FAERS Safety Report 18924069 (Version 3)
Quarter: 2021Q1

REPORT INFORMATION
  Report Type: Spontaneous
  Country: SI (occurrence: SI)
  Receive Date: 20210222
  Receipt Date: 20210318
  Transmission Date: 20210420
  Serious: Yes (Other)
  Sender: FDA-Public Use
  Company Number: SI-ASTELLAS-2021US005910

PATIENT
  Age: 64 Year
  Sex: Female

DRUGS (2)
  1. GILTERITINIB [Suspect]
     Active Substance: GILTERITINIB
     Indication: PRODUCT USED FOR UNKNOWN INDICATION
     Dosage: 120 MG, ONCE DAILY (3 TBL)
     Route: 065
     Dates: start: 20201211
  2. GILTERITINIB [Suspect]
     Active Substance: GILTERITINIB
     Dosage: 80 MG, ONCE DAILY (2 TBL)
     Route: 065

REACTIONS (12)
  - Thrombocytopenia [Unknown]
  - Fatigue [Unknown]
  - Contusion [Unknown]
  - Alanine aminotransferase increased [Unknown]
  - Tongue discomfort [Unknown]
  - Cough [Unknown]
  - Dry mouth [Unknown]
  - Electrocardiogram QT prolonged [Unknown]
  - Vision blurred [Unknown]
  - Decreased appetite [Unknown]
  - Anaemia [Unknown]
  - Aspartate aminotransferase increased [Unknown]
